FAERS Safety Report 9802170 (Version 3)
Quarter: 2014Q1

REPORT INFORMATION
  Report Type: Report from Study
  Country: CL (occurrence: CL)
  Receive Date: 20140107
  Receipt Date: 20140116
  Transmission Date: 20141002
  Serious: No
  Sender: FDA-Public Use
  Company Number: PHHY2013CL153615

PATIENT
  Age: 71 Year
  Sex: Male

DRUGS (2)
  1. TAREG D [Suspect]
     Indication: HYPERTENSION
     Dosage: 0.5 DF (160/12.5 MG), UKN
     Route: 048
  2. ATENOLOL [Concomitant]
     Indication: CARDIOMEGALY
     Dosage: 50 MG, UNK
     Route: 048

REACTIONS (4)
  - Glucose tolerance impaired [Recovered/Resolved]
  - Thirst [Recovered/Resolved]
  - Influenza [Recovered/Resolved]
  - Wrong technique in drug usage process [Unknown]
